FAERS Safety Report 18601399 (Version 1)
Quarter: 2020Q4

REPORT INFORMATION
  Report Type: Spontaneous
  Country: CN (occurrence: CN)
  Receive Date: 20201210
  Receipt Date: 20201210
  Transmission Date: 20210114
  Serious: Yes (Other)
  Sender: FDA-Public Use
  Company Number: CN-FRESENIUS KABI-FK202013074

PATIENT
  Age: 14 Year
  Sex: Female

DRUGS (2)
  1. MANNITOL 20% (MANUFACTURER UNKNOWN) [Suspect]
     Active Substance: MANNITOL
     Indication: EYE OEDEMA
     Route: 042
  2. BRINZOLAMIDE [Suspect]
     Active Substance: BRINZOLAMIDE
     Indication: EYE OEDEMA
     Route: 061

REACTIONS (5)
  - Condition aggravated [Recovered/Resolved]
  - Disease progression [Recovered/Resolved]
  - Eye oedema [Recovered/Resolved]
  - Visual acuity reduced [Recovered/Resolved]
  - Periorbital pain [Recovered/Resolved]
